FAERS Safety Report 8646514 (Version 3)
Quarter: 2013Q1

REPORT INFORMATION
  Report Type: Spontaneous
  Country: CO (occurrence: CO)
  Receive Date: 20120702
  Receipt Date: 20130215
  Transmission Date: 20140127
  Serious: Yes (Hospitalization)
  Sender: FDA-Public Use
  Company Number: CO-ROCHE-1083254

PATIENT
  Age: 53 Year
  Sex: Male

DRUGS (5)
  1. XOLAIR [Suspect]
     Indication: ASTHMA
     Route: 058
     Dates: start: 20120116
  2. DIAZEPAN NORMON [Concomitant]
  3. ASPARAGINE [Concomitant]
  4. LEVOGLUTAMIDE [Concomitant]
  5. PYRIDOXINE [Concomitant]
     Route: 065

REACTIONS (1)
  - Depression [Recovered/Resolved]
